FAERS Safety Report 11098698 (Version 3)
Quarter: 2015Q2

REPORT INFORMATION
  Report Type: Spontaneous
  Country: FR (occurrence: FR)
  Receive Date: 20150507
  Receipt Date: 20150618
  Transmission Date: 20150821
  Serious: Yes (Death, Hospitalization, Other)
  Sender: FDA-Public Use
  Company Number: FR-GILEAD-2015-0151438

PATIENT
  Age: 85 Year
  Sex: Female
  Weight: 52.5 kg

DRUGS (17)
  1. COPEGUS [Concomitant]
     Active Substance: RIBAVIRIN
     Indication: HEPATITIS C
     Dosage: 5 DF, QD
     Route: 065
     Dates: start: 20150410
  2. ALDACTONE [Concomitant]
     Active Substance: SPIRONOLACTONE
  3. LEVOTHYROX [Concomitant]
     Active Substance: LEVOTHYROXINE
  4. ATROVENT [Concomitant]
     Active Substance: IPRATROPIUM BROMIDE
  5. TIORFAN [Concomitant]
     Active Substance: RACECADOTRIL
  6. SPASFON LYOC [Concomitant]
     Active Substance: PHLOROGLUCINOL
  7. SOVALDI [Suspect]
     Active Substance: SOFOSBUVIR
     Indication: HEPATITIS C
     Dosage: 400 MG, UNK
     Route: 065
     Dates: start: 20150410, end: 201505
  8. ASPEGIC                            /00657701/ [Concomitant]
  9. CORDARONE [Concomitant]
     Active Substance: AMIODARONE HYDROCHLORIDE
     Dosage: UNK
     Route: 042
     Dates: start: 201506
  10. LASIX [Concomitant]
     Active Substance: FUROSEMIDE
     Dosage: UNK
  11. LASIX [Concomitant]
     Active Substance: FUROSEMIDE
     Dosage: 40 MG, UNK
     Dates: start: 20150423
  12. CORDARONE [Concomitant]
     Active Substance: AMIODARONE HYDROCHLORIDE
     Indication: EXTRASYSTOLES
     Dosage: UNK
  13. PARACETAMOL [Concomitant]
     Active Substance: ACETAMINOPHEN
  14. COLCHICINE A [Concomitant]
     Dosage: UNK
     Dates: end: 20150423
  15. COPEGUS [Concomitant]
     Active Substance: RIBAVIRIN
     Dosage: UNK
     Route: 065
     Dates: start: 20150421
  16. AUGMENTIN [Concomitant]
     Active Substance: AMOXICILLIN\CLAVULANATE POTASSIUM
     Dosage: UNK
     Dates: start: 201504
  17. GLYCERYL TRINITRATE [Concomitant]
     Active Substance: NITROGLYCERIN

REACTIONS (9)
  - Death [Fatal]
  - Acute pulmonary oedema [Unknown]
  - Cardiac failure [Unknown]
  - Anaemia [Unknown]
  - Decreased appetite [Unknown]
  - General physical health deterioration [Unknown]
  - Atrial fibrillation [Unknown]
  - Hepatic cirrhosis [Unknown]
  - Arrhythmia [Unknown]

NARRATIVE: CASE EVENT DATE: 20150410
